FAERS Safety Report 15629606 (Version 1)
Quarter: 2018Q4

REPORT INFORMATION
  Report Type: Spontaneous
  Country: CA (occurrence: CA)
  Receive Date: 20181117
  Receipt Date: 20181117
  Transmission Date: 20190205
  Serious: Yes (Other)
  Sender: FDA-Public Use
  Company Number: CA-ABBVIE-18K-028-2555539-00

PATIENT
  Age: 51 Year
  Sex: Female

DRUGS (13)
  1. ENBREL [Suspect]
     Active Substance: ETANERCEPT
     Indication: RHEUMATOID ARTHRITIS
     Route: 065
  2. ACTEMRA [Suspect]
     Active Substance: TOCILIZUMAB
     Indication: PRODUCT USED FOR UNKNOWN INDICATION
     Route: 065
  3. ORENCIA [Suspect]
     Active Substance: ABATACEPT
     Indication: RHEUMATOID ARTHRITIS
     Route: 042
  4. PLAQUENIL [Suspect]
     Active Substance: HYDROXYCHLOROQUINE SULFATE
     Indication: PRODUCT USED FOR UNKNOWN INDICATION
     Route: 065
  5. SIMPONI [Suspect]
     Active Substance: GOLIMUMAB
     Indication: RHEUMATOID ARTHRITIS
     Route: 058
  6. PREVACID [Concomitant]
     Active Substance: LANSOPRAZOLE
     Indication: PRODUCT USED FOR UNKNOWN INDICATION
  7. METHOTREXATE. [Suspect]
     Active Substance: METHOTREXATE
     Indication: PRODUCT USED FOR UNKNOWN INDICATION
     Route: 065
  8. PREDNISONE. [Concomitant]
     Active Substance: PREDNISONE
     Indication: PRODUCT USED FOR UNKNOWN INDICATION
  9. ARAVA [Suspect]
     Active Substance: LEFLUNOMIDE
     Indication: PRODUCT USED FOR UNKNOWN INDICATION
     Route: 065
  10. HUMIRA [Suspect]
     Active Substance: ADALIMUMAB
     Indication: PRODUCT USED FOR UNKNOWN INDICATION
     Route: 058
  11. REMICADE [Suspect]
     Active Substance: INFLIXIMAB
     Indication: PRODUCT USED FOR UNKNOWN INDICATION
     Route: 042
  12. RITUXAN [Suspect]
     Active Substance: RITUXIMAB
     Indication: PRODUCT USED FOR UNKNOWN INDICATION
     Route: 042
  13. XELJANZ [Concomitant]
     Active Substance: TOFACITINIB CITRATE
     Indication: RHEUMATOID ARTHRITIS
     Route: 048

REACTIONS (25)
  - Mouth haemorrhage [Unknown]
  - Nausea [Unknown]
  - Urticaria [Unknown]
  - Gingival bleeding [Unknown]
  - Bone erosion [Unknown]
  - C-reactive protein abnormal [Unknown]
  - Cough [Unknown]
  - Dyspnoea [Unknown]
  - Diarrhoea [Unknown]
  - Gait disturbance [Unknown]
  - Syncope [Unknown]
  - Joint swelling [Unknown]
  - Off label use [Unknown]
  - Arthritis [Unknown]
  - Peripheral swelling [Unknown]
  - Loss of personal independence in daily activities [Unknown]
  - Musculoskeletal stiffness [Unknown]
  - Liver function test increased [Unknown]
  - Rash [Unknown]
  - Eye haemorrhage [Unknown]
  - Abdominal discomfort [Unknown]
  - Asthenia [Unknown]
  - Headache [Unknown]
  - Infection [Unknown]
  - Drug ineffective [Unknown]
